FAERS Safety Report 8772440 (Version 1)
Quarter: 2012Q4

REPORT INFORMATION
  Report Type: 
  Country: US (occurrence: US)
  Receive Date: 20120905
  Receipt Date: 20120905
  Transmission Date: 20130627
  Serious: Yes (Hospitalization, Other)
  Sender: FDA-Public Use
  Company Number: US-JNJFOC-20120602763

PATIENT
  Age: 39 None
  Sex: Female

DRUGS (26)
  1. REMICADE [Suspect]
     Indication: PSORIATIC ARTHROPATHY
     Route: 042
     Dates: start: 20120531
  2. REMICADE [Suspect]
     Indication: PSORIATIC ARTHROPATHY
     Route: 042
     Dates: start: 20120517
  3. REMICADE [Suspect]
     Indication: PSORIASIS
     Route: 042
     Dates: start: 20120531
  4. REMICADE [Suspect]
     Indication: PSORIASIS
     Route: 042
     Dates: start: 20120517
  5. ENBREL [Suspect]
     Indication: PRODUCT USED FOR UNKNOWN INDICATION
     Route: 065
     Dates: start: 2000, end: 2012
  6. CYMBALTA [Concomitant]
     Indication: DEPRESSION
     Route: 048
     Dates: end: 20120726
  7. CYMBALTA [Concomitant]
     Indication: DEPRESSION
     Route: 048
  8. PROTONIX [Concomitant]
     Indication: GASTROOESOPHAGEAL REFLUX DISEASE
     Route: 065
  9. HYDROCHLOROTHIAZIDE [Concomitant]
     Indication: HYPERTENSION
     Route: 065
  10. FUROSEMIDE [Concomitant]
     Indication: OEDEMA PERIPHERAL
     Route: 048
  11. GLIPIZIDE XL [Concomitant]
     Indication: DIABETES MELLITUS
     Route: 048
  12. NYSTATIN [Concomitant]
     Dosage: 100000 U
     Route: 048
  13. DIFLUCAN [Concomitant]
     Route: 048
  14. SUCRALFATE [Concomitant]
     Route: 048
  15. VICODIN [Concomitant]
     Dosage: 5-500 mg
     Route: 048
  16. PROMETHAZINE [Concomitant]
     Route: 048
  17. LORAZEPAM [Concomitant]
     Route: 048
     Dates: end: 20120726
  18. HYOSCYAMINE SULFATE [Concomitant]
     Dosage: 1-2 tablet
     Route: 048
  19. DILAUDID [Concomitant]
     Route: 048
     Dates: end: 20120726
  20. METFORMIN HCL [Concomitant]
     Route: 048
  21. DEXILANT [Concomitant]
     Route: 048
  22. TRIBENZOR [Concomitant]
     Dosage: 40-5-25mg
     Route: 048
  23. DICYCLOMINE HCL [Concomitant]
     Dosage: 1-2 capsules four times a day
     Route: 048
  24. GABAPENTINE [Concomitant]
     Route: 048
  25. CLONAZEPAM [Concomitant]
     Route: 048
  26. TOPIRAMATE [Concomitant]
     Route: 048

REACTIONS (15)
  - Intervertebral disc protrusion [Unknown]
  - Type IV hypersensitivity reaction [Recovering/Resolving]
  - Serum sickness [Recovering/Resolving]
  - Vision blurred [Unknown]
  - Dysarthria [Not Recovered/Not Resolved]
  - Mental impairment [Unknown]
  - Memory impairment [Not Recovered/Not Resolved]
  - Diabetes mellitus inadequate control [Unknown]
  - Psoriatic arthropathy [Recovered/Resolved]
  - Demyelination [Recovered/Resolved]
  - Headache [Not Recovered/Not Resolved]
  - Intervertebral disc degeneration [Unknown]
  - Lymphadenopathy [Recovering/Resolving]
  - Pain [Unknown]
  - Asthenia [Unknown]
